FAERS Safety Report 25445084 (Version 1)
Quarter: 2025Q2

REPORT INFORMATION
  Report Type: Spontaneous
  Country: US (occurrence: None)
  Receive Date: 20250616
  Receipt Date: 20250616
  Transmission Date: 20250716
  Serious: No
  Sender: FDA-CTU
  Company Number: None

PATIENT
  Age: 3 Year
  Sex: Male
  Weight: 12.8 kg

DRUGS (1)
  1. VOXZOGO [Suspect]
     Active Substance: VOSORITIDE
     Indication: Osteochondrodysplasia
     Dosage: FREQUENCY : DAILY;?
     Route: 058
     Dates: start: 20240521

REACTIONS (3)
  - Arthralgia [None]
  - Joint swelling [None]
  - Joint range of motion decreased [None]

NARRATIVE: CASE EVENT DATE: 20250101
